FAERS Safety Report 22146877 (Version 3)
Quarter: 2023Q2

REPORT INFORMATION
  Report Type: Spontaneous
  Country: NL (occurrence: NL)
  Receive Date: 20230328
  Receipt Date: 20230502
  Transmission Date: 20230721
  Serious: Yes (Death)
  Sender: FDA-Public Use
  Company Number: NL-PFIZER INC-PV202300054297

PATIENT
  Age: 63 Year
  Sex: Female

DRUGS (4)
  1. RITUXIMAB [Suspect]
     Active Substance: RITUXIMAB
     Dosage: UNK
  2. CYTARABINE [Suspect]
     Active Substance: CYTARABINE
  3. DEXAMETHASONE [Suspect]
     Active Substance: DEXAMETHASONE
  4. CISPLATIN [Suspect]
     Active Substance: CISPLATIN

REACTIONS (4)
  - Skin lesion [Fatal]
  - Pleural effusion [Fatal]
  - Neoplasm progression [Fatal]
  - Refraction disorder [Fatal]
